FAERS Safety Report 4650743-X (Version None)
Quarter: 2005Q2

REPORT INFORMATION
  Report Type: 
  Country: None (occurrence: None)
  Receive Date: 20050503
  Receipt Date: 20040922
  Transmission Date: 20051028
  Serious: Yes (Hospitalization)
  Sender: FDA-Public Use
  Company Number: US-2004-BP-08530BP

PATIENT
  Age: 69 Year
  Sex: Male

DRUGS (4)
  1. AGGRENOX [Suspect]
     Indication: CEREBROVASCULAR ACCIDENT PROPHYLAXIS
     Dosage: 50 MG/400 MG
     Route: 048
  2. AGGRENOX [Suspect]
     Indication: TRANSIENT ISCHAEMIC ATTACK
  3. ATENOLOL [Concomitant]
     Indication: HYPERTENSION
  4. LIPITOR [Concomitant]

REACTIONS (5)
  - BLOOD PRESSURE INCREASED [None]
  - DENTAL CARIES [None]
  - PROSTATECTOMY [None]
  - TOOTH INFECTION [None]
  - TOOTHACHE [None]
